FAERS Safety Report 4442111-0 (Version None)
Quarter: 2004Q3

REPORT INFORMATION
  Report Type: 
  Country: None (occurrence: None)
  Receive Date: 20040903
  Receipt Date: 20040628
  Transmission Date: 20050211
  Serious: Yes (Hospitalization)
  Sender: FDA-Public Use
  Company Number: 2004UW13485

PATIENT
  Age: 79 Year
  Sex: Female

DRUGS (15)
  1. CRESTOR [Suspect]
     Dosage: 10 MG DAILY PO
     Route: 048
     Dates: start: 20040602, end: 20040601
  2. LIPITOR [Concomitant]
  3. ZETIA [Concomitant]
  4. ZYNTHROID [Concomitant]
  5. SINGULAIR [Concomitant]
  6. LASIX [Concomitant]
  7. LISINOPRIL [Concomitant]
  8. FOLIC ACID [Concomitant]
  9. DILTIAZEM [Concomitant]
  10. FOLONASE [Concomitant]
  11. ADVAIR DISKUS 100/50 [Concomitant]
  12. ALBUTEROL [Concomitant]
  13. ATROVENT [Concomitant]
  14. INDOMETHACIN 25MG CAP [Concomitant]
  15. ALLOPURINOL [Concomitant]

REACTIONS (3)
  - ABDOMINAL PAIN UPPER [None]
  - CHEST DISCOMFORT [None]
  - HEPATIC ENZYME INCREASED [None]
